FAERS Safety Report 9345305 (Version 3)
Quarter: 2014Q2

REPORT INFORMATION
  Report Type: Spontaneous
  Country: US (occurrence: US)
  Receive Date: 20130613
  Receipt Date: 20140408
  Transmission Date: 20141212
  Serious: Yes (Hospitalization)
  Sender: FDA-Public Use
  Company Number: US-B.I. PHARMACEUTICALS,INC./RIDGEFIELD-2013-BI-16290BP

PATIENT
  Age: 57 Year
  Sex: Male
  Weight: 153.31 kg

DRUGS (6)
  1. PRADAXA [Suspect]
     Indication: ANTICOAGULANT THERAPY
     Dosage: 300 MG
     Route: 065
     Dates: start: 20110301, end: 20110803
  2. PRADAXA [Suspect]
     Indication: ATRIAL FIBRILLATION
  3. FLECAINIDE [Concomitant]
     Route: 065
  4. SOTALOL [Concomitant]
     Route: 065
  5. SIMVASTATIN [Concomitant]
     Route: 065
  6. CEFUROXIME AXETIL [Concomitant]
     Route: 065

REACTIONS (3)
  - Pericardial haemorrhage [Unknown]
  - Cardiac failure congestive [Unknown]
  - Blood urine present [Unknown]
